FAERS Safety Report 5217045-4 (Version None)
Quarter: 2007Q1

REPORT INFORMATION
  Report Type: 
  Country: None (occurrence: None)
  Receive Date: 20070119
  Receipt Date: 20070112
  Transmission Date: 20070707
  Serious: Yes (Other)
  Sender: FDA-Public Use
  Company Number: GXKR2007IL00773

PATIENT
  Age: 74 Year
  Sex: Female

DRUGS (6)
  1. DEXAMETHASONE [Suspect]
     Indication: B PRECURSOR TYPE ACUTE LEUKAEMIA
  2. VINCRISTINE [Suspect]
     Indication: B PRECURSOR TYPE ACUTE LEUKAEMIA
  3. METHOTREXATE (NGX) (METHOTREXATE) UNKNOWN [Suspect]
     Indication: B PRECURSOR TYPE ACUTE LEUKAEMIA
     Dosage: INTRATHECAL
     Route: 037
  4. CYCLOPHOSPHAMIDE [Suspect]
     Indication: B PRECURSOR TYPE ACUTE LEUKAEMIA
  5. DAUNORUBICIN HCL [Suspect]
     Indication: B PRECURSOR TYPE ACUTE LEUKAEMIA
  6. ASPARAGINASE(ASPARAGINASE) [Suspect]
     Indication: B PRECURSOR TYPE ACUTE LEUKAEMIA

REACTIONS (5)
  - ALANINE AMINOTRANSFERASE INCREASED [None]
  - ASPARTATE AMINOTRANSFERASE INCREASED [None]
  - BILIRUBIN CONJUGATED INCREASED [None]
  - BLOOD ALKALINE PHOSPHATASE INCREASED [None]
  - HEPATOTOXICITY [None]
